FAERS Safety Report 18419244 (Version 1)
Quarter: 2020Q4

REPORT INFORMATION
  Report Type: Spontaneous
  Country: US (occurrence: US)
  Receive Date: 20201023
  Receipt Date: 20201023
  Transmission Date: 20210114
  Serious: Yes (Death)
  Sender: FDA-Public Use
  Company Number: None

PATIENT
  Age: 62 Year
  Sex: Male

DRUGS (6)
  1. INLYTA [Suspect]
     Active Substance: AXITINIB
     Indication: RENAL CANCER
     Dosage: ?          OTHER DOSE:1 TAB;?
     Route: 048
     Dates: start: 20191108, end: 20200320
  2. MORPHINE SUL, [Concomitant]
  3. XANAX XR [Concomitant]
     Active Substance: ALPRAZOLAM
  4. TEMAZEPAM, [Concomitant]
  5. ONDANSETRON, [Concomitant]
  6. TRAZODONE, [Concomitant]

REACTIONS (1)
  - Colonoscopy [None]

NARRATIVE: CASE EVENT DATE: 20200320
